FAERS Safety Report 20163146 (Version 2)
Quarter: 2022Q1

REPORT INFORMATION
  Report Type: Report from Study
  Country: US (occurrence: None)
  Receive Date: 20211209
  Receipt Date: 20220127
  Transmission Date: 20220423
  Serious: Yes (Other)
  Sender: FDA-Public Use
  Company Number: US-Merck Healthcare KGaA-9284623

PATIENT
  Age: 56 Year
  Sex: Female

DRUGS (1)
  1. REBIF [Suspect]
     Active Substance: INTERFERON BETA-1A
     Indication: Product used for unknown indication
     Dates: start: 20200724

REACTIONS (5)
  - Atrial fibrillation [Recovering/Resolving]
  - Feeling abnormal [Unknown]
  - Vertigo [Unknown]
  - Weight decreased [Recovering/Resolving]
  - Thyroid disorder [Unknown]

NARRATIVE: CASE EVENT DATE: 20210701
